FAERS Safety Report 8747444 (Version 2)
Quarter: 2012Q4

REPORT INFORMATION
  Report Type: 
  Country: NG (occurrence: NG)
  Receive Date: 20120827
  Receipt Date: 20120910
  Transmission Date: 20130627
  Serious: Yes (Other)
  Sender: FDA-Public Use
  Company Number: ZA-ASTRAZENECA-2012SE58160

PATIENT
  Age: 9 Year
  Sex: Female
  Weight: 44 kg

DRUGS (2)
  1. MERONEM [Suspect]
     Indication: SEPSIS
     Dosage: EVERY 12 HOURS
     Route: 042
     Dates: start: 20120717, end: 20120722
  2. ARTESUNATE [Concomitant]
     Route: 042

REACTIONS (3)
  - Jaundice hepatocellular [Recovered/Resolved]
  - Protein total increased [Recovered/Resolved]
  - Blood albumin increased [Recovered/Resolved]
